FAERS Safety Report 15274631 (Version 2)
Quarter: 2018Q4

REPORT INFORMATION
  Report Type: Report from Study
  Country: None (occurrence: IL)
  Receive Date: 20180814
  Receipt Date: 20181019
  Transmission Date: 20190204
  Serious: Yes (Hospitalization)
  Sender: FDA-Public Use
  Company Number: IL-ABBVIE-18K-082-2416875-00

PATIENT
  Age: 19 Year
  Sex: Female

DRUGS (1)
  1. HUMIRA [Suspect]
     Active Substance: ADALIMUMAB
     Indication: ANKYLOSING SPONDYLITIS
     Route: 058
     Dates: start: 20180613

REACTIONS (14)
  - Bone swelling [Recovered/Resolved]
  - Oropharyngeal pain [Recovering/Resolving]
  - Pruritus [Recovered/Resolved]
  - Oropharyngeal discolouration [Not Recovered/Not Resolved]
  - Pain [Not Recovered/Not Resolved]
  - Drug effect incomplete [Not Recovered/Not Resolved]
  - Joint swelling [Recovered/Resolved]
  - Arthralgia [Recovering/Resolving]
  - Gastroenteritis viral [Recovered/Resolved]
  - Pharyngeal inflammation [Not Recovered/Not Resolved]
  - Helicobacter infection [Recovering/Resolving]
  - Erythema [Recovered/Resolved]
  - Oropharyngeal pain [Recovered/Resolved]
  - Pharyngeal inflammation [Recovered/Resolved]

NARRATIVE: CASE EVENT DATE: 2018
